FAERS Safety Report 9140255 (Version 1)
Quarter: 2013Q1

REPORT INFORMATION
  Report Type: Spontaneous
  Country: GB (occurrence: GB)
  Receive Date: 20130305
  Receipt Date: 20130305
  Transmission Date: 20140127
  Serious: Yes (Congenital Anomaly)
  Sender: FDA-Public Use
  Company Number: GB-ABBOTT-13A-167-1057853-00

PATIENT
  Sex: 0

DRUGS (1)
  1. EPILIM [Suspect]
     Indication: MATERNAL EXPOSURE TIMING UNSPECIFIED
     Route: 064

REACTIONS (6)
  - Deafness [Unknown]
  - Autism [Unknown]
  - Learning disorder [Unknown]
  - Incontinence [Unknown]
  - Adverse event [Unknown]
  - Foetal exposure during pregnancy [Unknown]
